FAERS Safety Report 7331164-8 (Version None)
Quarter: 2011Q1

REPORT INFORMATION
  Report Type: 
  Country: None (occurrence: None)
  Receive Date: 20110228
  Receipt Date: 20110228
  Transmission Date: 20110831
  Serious: Yes (Other)
  Sender: FDA-Public Use
  Company Number: None

PATIENT
  Age: 12 Year
  Sex: Male
  Weight: 42.1845 kg

DRUGS (2)
  1. RISPERIDONE [Suspect]
     Indication: ATTENTION DEFICIT/HYPERACTIVITY DISORDER
     Dosage: 2MG 1X ORAL
     Route: 048
     Dates: start: 20110118, end: 20110201
  2. RISPERIDONE [Suspect]
     Indication: ANGER
     Dosage: 2MG 1X ORAL
     Route: 048
     Dates: start: 20110118, end: 20110201

REACTIONS (2)
  - PARANOIA [None]
  - ANXIETY [None]
